FAERS Safety Report 7499395-4 (Version None)
Quarter: 2011Q2

REPORT INFORMATION
  Report Type: 
  Country: None (occurrence: None)
  Receive Date: 20110516
  Receipt Date: 20110506
  Transmission Date: 20111010
  Serious: Yes (Disabling, Other)
  Sender: FDA-Public Use
  Company Number: WAES 1105USA01258

PATIENT
  Sex: Female
  Weight: 57.6068 kg

DRUGS (11)
  1. FOSAMAX [Suspect]
     Dosage: PO
     Route: 048
     Dates: start: 20101104
  2. CINACALCET [Concomitant]
  3. HEMP [Suspect]
     Dosage: 500 MG DAILY
  4. HYDROCORTISONE [Concomitant]
  5. CORTICOSTEROIDS [Concomitant]
  6. POTASSIUM CHLORIDE [Concomitant]
  7. VITAMIN D [Concomitant]
  8. LIPITOR [Suspect]
     Dosage: 40 MG DAILY,
     Dates: end: 20090101
  9. LIPITOR [Suspect]
     Dosage: 40 MG DAILY,
     Dates: start: 20090101
  10. LEVOXYL [Concomitant]
  11. ASPIRIN [Concomitant]

REACTIONS (13)
  - BLOOD THYROID STIMULATING HORMONE DECREASED [None]
  - SELF-MEDICATION [None]
  - THROMBOSIS [None]
  - ANGINA PECTORIS [None]
  - BLOOD GLUCOSE INCREASED [None]
  - BLOOD PRESSURE ABNORMAL [None]
  - CYSTITIS [None]
  - WEIGHT FLUCTUATION [None]
  - PROTEIN TOTAL DECREASED [None]
  - BLOOD UREA INCREASED [None]
  - HAEMOGLOBIN DECREASED [None]
  - FRACTURE [None]
  - ANXIETY [None]
